FAERS Safety Report 9932878 (Version 1)
Quarter: 2014Q1

REPORT INFORMATION
  Report Type: Spontaneous
  Country: US (occurrence: US)
  Receive Date: 20140228
  Receipt Date: 20140228
  Transmission Date: 20141002
  Serious: No
  Sender: FDA-Public Use
  Company Number: US-ABBVIE-13P-163-1060090-00

PATIENT
  Age: 46 Year
  Sex: Male

DRUGS (1)
  1. ANDROGEL [Suspect]
     Indication: PRODUCT USED FOR UNKNOWN INDICATION

REACTIONS (4)
  - Testicular atrophy [Not Recovered/Not Resolved]
  - Testicular atrophy [Not Recovered/Not Resolved]
  - Mobility decreased [Not Recovered/Not Resolved]
  - Incontinence [Not Recovered/Not Resolved]
